FAERS Safety Report 8268687-3 (Version None)
Quarter: 2012Q2

REPORT INFORMATION
  Report Type: 
  Country: None (occurrence: None)
  Receive Date: 20120409
  Receipt Date: 20120329
  Transmission Date: 20120825
  Serious: Yes (Hospitalization)
  Sender: FDA-Public Use
  Company Number: FR-ROCHE-1044689

PATIENT
  Sex: Male
  Weight: 103 kg

DRUGS (1)
  1. VEMURAFENIB [Suspect]
     Indication: METASTATIC MALIGNANT MELANOMA
     Route: 048
     Dates: start: 20120111, end: 20120224

REACTIONS (6)
  - COMA [None]
  - VOMITING [None]
  - CYTOLYTIC HEPATITIS [None]
  - HEPATOTOXICITY [None]
  - FALL [None]
  - ASCITES [None]
